FAERS Safety Report 5839089-1 (Version None)
Quarter: 2008Q3

REPORT INFORMATION
  Report Type: 
  Country: None (occurrence: None)
  Receive Date: 20080808
  Receipt Date: 20080801
  Transmission Date: 20090109
  Serious: Yes (Other)
  Sender: FDA-Public Use
  Company Number: NO-AMGEN-US300073

PATIENT
  Sex: Female

DRUGS (8)
  1. ENBREL [Suspect]
     Indication: RHEUMATOID ARTHRITIS
     Dosage: NOT SPECIFIED
     Route: 065
  2. CIPRALEX [Concomitant]
     Route: 065
  3. TRAMADOL HCL [Concomitant]
     Route: 065
  4. METOJECT [Concomitant]
     Indication: RHEUMATOID ARTHRITIS
     Route: 065
  5. MULTIVITAMINS, COMBINATIONS [Concomitant]
     Route: 065
  6. SOBRIL [Concomitant]
     Route: 065
  7. ZOPICLONE [Concomitant]
     Route: 065
  8. CALCIUM [Concomitant]
     Route: 048

REACTIONS (4)
  - BLISTER [None]
  - NAIL DISORDER [None]
  - ONYCHOCLASIS [None]
  - SYSTEMIC LUPUS ERYTHEMATOSUS [None]
